FAERS Safety Report 7768522-3 (Version None)
Quarter: 2011Q3

REPORT INFORMATION
  Report Type: 
  Country: None (occurrence: None)
  Receive Date: 20110922
  Receipt Date: 20100831
  Transmission Date: 20111222
  Serious: No
  Sender: FDA-Public Use
  Company Number: US-ASTRAZENECA-2010SE31842

PATIENT
  Age: 25 Year
  Sex: Male
  Weight: 72.6 kg

DRUGS (4)
  1. CELEXA [Concomitant]
  2. SEROQUEL [Suspect]
     Indication: BIPOLAR DISORDER
     Route: 048
     Dates: start: 20100101
  3. SEROQUEL [Suspect]
     Indication: DEPRESSION
     Route: 048
     Dates: start: 20100101
  4. KLONOPIN [Concomitant]
     Dosage: UNNOWN DOSE AS REQUIRED

REACTIONS (9)
  - PAIN [None]
  - HEADACHE [None]
  - EATING DISORDER [None]
  - BOWEL MOVEMENT IRREGULARITY [None]
  - WRONG DRUG ADMINISTERED [None]
  - DRUG DOSE OMISSION [None]
  - ADVERSE REACTION [None]
  - INCORRECT DOSE ADMINISTERED [None]
  - INSOMNIA [None]
